FAERS Safety Report 9665137 (Version 3)
Quarter: 2014Q1

REPORT INFORMATION
  Report Type: Report from Study
  Country: US (occurrence: US)
  Receive Date: 20131101
  Receipt Date: 20140306
  Transmission Date: 20141002
  Serious: Yes (Other)
  Sender: FDA-Public Use
  Company Number: US-BAXTER-2013BAX041079

PATIENT
  Sex: Male
  Weight: 72.73 kg

DRUGS (14)
  1. GAMMAGARD LIQUID [Suspect]
     Indication: IMMUNODEFICIENCY COMMON VARIABLE
     Dosage: 1.5G PER KILOGRAM
     Route: 042
     Dates: start: 201209, end: 201209
  2. GAMMAGARD LIQUID [Suspect]
     Indication: PAEDIATRIC AUTOIMMUNE NEUROPSYCHIATRIC DISORDERS ASSOCIATED WITH STREPTOCOCCAL INFECTION
     Route: 042
     Dates: start: 201304
  3. GAMMAGARD LIQUID [Suspect]
     Indication: OFF LABEL USE
     Route: 042
     Dates: start: 20131004
  4. MULTIVITAMINS [Concomitant]
     Indication: PRODUCT USED FOR UNKNOWN INDICATION
     Route: 048
  5. VITAMIN B [Concomitant]
     Indication: PRODUCT USED FOR UNKNOWN INDICATION
     Route: 048
  6. PROBIOTICS [Concomitant]
     Indication: PRODUCT USED FOR UNKNOWN INDICATION
     Route: 048
  7. LORATADINE [Concomitant]
     Indication: PRODUCT USED FOR UNKNOWN INDICATION
     Route: 048
  8. BACTRIM [Concomitant]
     Indication: ACNE
     Route: 048
  9. NYSTATIN [Concomitant]
     Indication: CANDIDA INFECTION
     Route: 061
  10. IBUPROFEN [Concomitant]
     Indication: PREMEDICATION
     Dosage: BEFORE INFUSION EVERY 6 HOURS
     Route: 048
  11. BENADRYL [Concomitant]
     Indication: PREMEDICATION
     Dosage: BEFORE INFUSION
     Route: 048
  12. DULERA [Concomitant]
     Indication: ASTHMA
     Dosage: INHALED 1 PUFF
  13. ALBUTEROL [Concomitant]
     Indication: ASTHMA
     Dosage: INHALED
  14. EPIPEN [Concomitant]
     Indication: HYPERSENSITIVITY

REACTIONS (2)
  - Sinusitis [Not Recovered/Not Resolved]
  - Headache [Recovered/Resolved]
